FAERS Safety Report 4566462-4 (Version None)
Quarter: 2005Q1

REPORT INFORMATION
  Report Type: 
  Country: None (occurrence: None)
  Receive Date: 20050201
  Receipt Date: 20050127
  Transmission Date: 20050727
  Serious: Yes (Hospitalization)
  Sender: FDA-Public Use
  Company Number: US-BRISTOL-MYERS SQUIBB COMPANY-12840070

PATIENT
  Age: 8 Decade
  Sex: Male

DRUGS (1)
  1. TEQUIN [Suspect]

REACTIONS (1)
  - HYPOGLYCAEMIA [None]
